FAERS Safety Report 5758697-X (Version None)
Quarter: 2008Q2

REPORT INFORMATION
  Report Type: 
  Country: None (occurrence: None)
  Receive Date: 20080603
  Receipt Date: 20080603
  Transmission Date: 20081010
  Serious: Yes (Hospitalization)
  Sender: FDA-Public Use
  Company Number: None

PATIENT
  Sex: Male
  Weight: 84.2 kg

DRUGS (1)
  1. ERBITUX [Suspect]
     Dosage: 772 MG

REACTIONS (6)
  - DIARRHOEA [None]
  - HEADACHE [None]
  - NAUSEA [None]
  - PROCTALGIA [None]
  - PYREXIA [None]
  - VOMITING [None]
